FAERS Safety Report 7469709-X (Version None)
Quarter: 2011Q2

REPORT INFORMATION
  Report Type: 
  Country: None (occurrence: None)
  Receive Date: 20110510
  Receipt Date: 20110502
  Transmission Date: 20111010
  Serious: Yes (Death, Hospitalization, Other)
  Sender: FDA-Public Use
  Company Number: IT-BRISTOL-MYERS SQUIBB COMPANY-15712144

PATIENT
  Age: 66 Year
  Sex: Female

DRUGS (1)
  1. COUMADIN [Suspect]
     Indication: PULMONARY EMBOLISM
     Dosage: 1DF:5MG.INTERRUPTED ON 11DEC2000
     Dates: start: 20001201

REACTIONS (6)
  - CARDIAC ARREST [None]
  - EYE HAEMORRHAGE [None]
  - INTESTINAL OBSTRUCTION [None]
  - INTRA-ABDOMINAL HAEMATOMA [None]
  - ATRIAL FIBRILLATION [None]
  - RENAL FAILURE [None]
